FAERS Safety Report 8723622 (Version 2)
Quarter: 2013Q4

REPORT INFORMATION
  Report Type: Spontaneous
  Country: ES (occurrence: ES)
  Receive Date: 20120815
  Receipt Date: 20131105
  Transmission Date: 20140711
  Serious: Yes (Other)
  Sender: FDA-Public Use
  Company Number: ES-009507513-1208ESP002297

PATIENT
  Age: 79 Year
  Sex: Female
  Weight: 65 kg

DRUGS (5)
  1. ZESTRIL [Suspect]
     Indication: HYPERTENSION
     Dosage: UNK
     Route: 048
  2. AMLODIPINE [Concomitant]
     Indication: HYPERTENSION
  3. HYDROCHLOROTHIAZIDE [Concomitant]
     Indication: HYPERTENSION
     Route: 048
  4. GLYBURIDE [Concomitant]
     Indication: TYPE 2 DIABETES MELLITUS
  5. METFORMIN [Concomitant]
     Indication: TYPE 2 DIABETES MELLITUS

REACTIONS (1)
  - Cardiomyopathy [Unknown]
